FAERS Safety Report 18348843 (Version 1)
Quarter: 2020Q4

REPORT INFORMATION
  Report Type: Spontaneous
  Country: US (occurrence: US)
  Receive Date: 20201005
  Receipt Date: 20201005
  Transmission Date: 20210114
  Serious: No
  Sender: FDA-Public Use
  Company Number: None

PATIENT
  Age: 47 Year
  Sex: Female

DRUGS (1)
  1. TECFIDERA [Suspect]
     Active Substance: DIMETHYL FUMARATE
     Indication: MULTIPLE SCLEROSIS
     Dosage: OTHER DOSE:120MG/240MG; TITRATION - SEE EVENT  ORAL?
     Route: 048
     Dates: start: 20200827, end: 202009

REACTIONS (2)
  - Therapy cessation [None]
  - Diarrhoea [None]

NARRATIVE: CASE EVENT DATE: 202008
